FAERS Safety Report 9648860 (Version 2)
Quarter: 2013Q4

REPORT INFORMATION
  Report Type: Spontaneous
  Country: KR (occurrence: KR)
  Receive Date: 20131028
  Receipt Date: 20131028
  Transmission Date: 20140711
  Serious: Yes (Death, Hospitalization)
  Sender: FDA-Public Use
  Company Number: PHHY2013KR118278

PATIENT
  Age: 82 Year
  Sex: Female

DRUGS (11)
  1. METFORMIN [Suspect]
     Indication: TYPE 2 DIABETES MELLITUS
     Dosage: 2000 MG, DAILY
  2. CIMETIDINE [Interacting]
     Indication: FRACTURE
     Dosage: 600 MG, DAILY
  3. CIMETIDINE [Interacting]
     Indication: FALL
  4. DEXIBUPROFEN [Suspect]
     Indication: FRACTURE
     Dosage: 600 MG, DAILY
  5. DEXIBUPROFEN [Suspect]
     Indication: FALL
  6. GLICLAZIDE [Concomitant]
  7. VOGLIBOSE [Concomitant]
  8. FENOFIBRATE [Concomitant]
  9. ATORVASTATIN [Concomitant]
  10. LORAZEPAM [Concomitant]
  11. THIOCTACID [Concomitant]

REACTIONS (37)
  - Infection [Fatal]
  - Renal failure acute [Recovering/Resolving]
  - Pancreatitis acute [Recovering/Resolving]
  - Altered state of consciousness [Unknown]
  - Pneumonia aspiration [Not Recovered/Not Resolved]
  - Sepsis [Not Recovered/Not Resolved]
  - Blood urea increased [Unknown]
  - Blood creatinine increased [Unknown]
  - Blood lactate dehydrogenase increased [Unknown]
  - Blood lactic acid increased [Recovering/Resolving]
  - Pyrexia [Unknown]
  - Cough [Unknown]
  - Blood pressure decreased [Unknown]
  - Heart rate decreased [Unknown]
  - Respiratory rate increased [Unknown]
  - Abdominal distension [Unknown]
  - Abdominal tenderness [Unknown]
  - Gastrointestinal sounds abnormal [Recovered/Resolved]
  - Skin turgor decreased [Unknown]
  - White blood cell count increased [Unknown]
  - Blood alkaline phosphatase increased [Unknown]
  - Blood phosphorus increased [Unknown]
  - Amylase increased [Recovering/Resolving]
  - Lipase increased [Recovering/Resolving]
  - Pancreatic disorder [Recovering/Resolving]
  - Metabolic acidosis [Unknown]
  - Oliguria [Unknown]
  - Blood gases abnormal [Unknown]
  - Blood pH decreased [Unknown]
  - Blood potassium increased [Unknown]
  - Blood chloride decreased [Unknown]
  - Myoglobin blood increased [Unknown]
  - Toxicity to various agents [Unknown]
  - Aspartate aminotransferase increased [Unknown]
  - Lactic acidosis [Recovering/Resolving]
  - Vomiting [Unknown]
  - Nausea [Unknown]
